FAERS Safety Report 8890957 (Version 1)
Quarter: 2012Q4

REPORT INFORMATION
  Report Type: 
  Country: US (occurrence: US)
  Receive Date: 20121107
  Receipt Date: 20121107
  Transmission Date: 20130627
  Serious: Yes (Other)
  Sender: FDA-Public Use
  Company Number: US-PFIZER INC-2012274742

PATIENT
  Sex: Female
  Weight: 85.71 kg

DRUGS (3)
  1. PREMARIN [Suspect]
     Indication: HORMONE REPLACEMENT THERAPY
     Dosage: 0.625 mg, 1x/day every morning
     Route: 048
  2. PREMARIN [Suspect]
     Dosage: 0.625 mg, daily
     Route: 048
  3. PROPRANOLOL [Concomitant]
     Indication: BLOOD PRESSURE HIGH
     Dosage: 80 mg, daily

REACTIONS (4)
  - Diabetes mellitus [Unknown]
  - Gait disturbance [Recovered/Resolved]
  - Arthralgia [Recovered/Resolved]
  - Limb discomfort [Recovered/Resolved]
